FAERS Safety Report 20894540 (Version 1)
Quarter: 2022Q2

REPORT INFORMATION
  Report Type: Spontaneous
  Country: US (occurrence: None)
  Receive Date: 20220527
  Receipt Date: 20220527
  Transmission Date: 20220721
  Serious: Yes (Other)
  Sender: FDA-Public Use
  Company Number: None

PATIENT
  Age: 74 Year
  Sex: Female
  Weight: 65.25 kg

DRUGS (3)
  1. PIQRAY [Suspect]
     Active Substance: ALPELISIB
     Indication: Breast cancer metastatic
     Dosage: FREQUENCY : TWICE A DAY;?
     Route: 048
     Dates: start: 20220522
  2. IRBESARTAN [Concomitant]
     Active Substance: IRBESARTAN
     Dates: start: 20210521
  3. NOVOLOG [Concomitant]
     Active Substance: INSULIN ASPART
     Dates: start: 20120531

REACTIONS (1)
  - Blood glucose increased [None]

NARRATIVE: CASE EVENT DATE: 20220522
